FAERS Safety Report 14714230 (Version 2)
Quarter: 2018Q3

REPORT INFORMATION
  Report Type: Report from Study
  Country: JP (occurrence: JP)
  Receive Date: 20180404
  Receipt Date: 20180822
  Transmission Date: 20181010
  Serious: Yes (Other)
  Sender: FDA-Public Use
  Company Number: JP-GLAXOSMITHKLINE-JP2018JPN012119

PATIENT
  Age: 4 Decade
  Sex: Female
  Weight: 41 kg

DRUGS (14)
  1. AMOXICILLIN HYDRATE [Concomitant]
     Active Substance: AMOXICILLIN
     Dosage: UNK
  2. BELIMUMAB [Suspect]
     Active Substance: BELIMUMAB
     Indication: SYSTEMIC LUPUS ERYTHEMATOSUS
     Dosage: 400MG(10 MG/KG), ONCE EVERY TWO WEEKS
     Route: 041
     Dates: start: 20180118, end: 20180215
  3. BELIMUMAB [Suspect]
     Active Substance: BELIMUMAB
     Dosage: 10 MG/KG, ONCE EVERY FOUR WEEKS
     Route: 041
     Dates: start: 20180315
  4. BETAMETHASONE. [Concomitant]
     Active Substance: BETAMETHASONE
     Indication: SYSTEMIC LUPUS ERYTHEMATOSUS
     Dosage: 2 MG, 1D
     Dates: start: 20180118, end: 20180207
  5. CELLCEPT CAPSULE [Concomitant]
     Indication: SYSTEMIC LUPUS ERYTHEMATOSUS
     Dosage: UNK
  6. BETAMETHASONE. [Concomitant]
     Active Substance: BETAMETHASONE
     Dosage: 1.5 MG, 1D
     Dates: start: 20180208, end: 20180214
  7. BETAMETHASONE. [Concomitant]
     Active Substance: BETAMETHASONE
     Dosage: 0.75 MG, 1D
     Dates: start: 20180315, end: 20180815
  8. BETAMETHASONE. [Concomitant]
     Active Substance: BETAMETHASONE
     Dosage: 0.5 MG, 1D
     Dates: start: 20180816
  9. PLAQUENIL [Concomitant]
     Active Substance: HYDROXYCHLOROQUINE SULFATE
     Indication: SYSTEMIC LUPUS ERYTHEMATOSUS
     Dosage: UNK
  10. CEFPODOXIME PROXETIL. [Concomitant]
     Active Substance: CEFPODOXIME PROXETIL
     Dosage: UNK
  11. MINOMYCIN [Concomitant]
     Active Substance: MINOCYCLINE HYDROCHLORIDE
     Dosage: UNK
  12. BANAN [Concomitant]
     Active Substance: CEFPODOXIME PROXETIL
     Dosage: UNK
  13. TRACLEER [Concomitant]
     Active Substance: BOSENTAN
     Dosage: UNK
  14. BETAMETHASONE. [Concomitant]
     Active Substance: BETAMETHASONE
     Dosage: 1.25 MG, 1D
     Dates: start: 20180215, end: 20180314

REACTIONS (2)
  - Panniculitis [Recovered/Resolved]
  - Joint swelling [Not Recovered/Not Resolved]

NARRATIVE: CASE EVENT DATE: 20180122
